FAERS Safety Report 5419989-7 (Version None)
Quarter: 2007Q3

REPORT INFORMATION
  Report Type: 
  Country: None (occurrence: None)
  Receive Date: 20070820
  Receipt Date: 20070808
  Transmission Date: 20080115
  Serious: Yes (Hospitalization)
  Sender: FDA-Public Use
  Company Number: US-PFIZER INC-2007065963

PATIENT
  Sex: Female
  Weight: 167.4 kg

DRUGS (8)
  1. DILANTIN [Suspect]
     Indication: CONVULSION
     Route: 042
  2. TRILEPTAL [Suspect]
     Indication: CONVULSION
     Dates: start: 20050101
  3. AZITHROMYCIN [Suspect]
  4. CLINDAMYCIN HYDROCHLORIDE [Suspect]
  5. LISINOPRIL [Concomitant]
  6. HYDROCHLOROTHIAZIDE [Concomitant]
  7. AZMACORT [Concomitant]
  8. ALBUTEROL [Concomitant]

REACTIONS (12)
  - ACUTE GENERALISED EXANTHEMATOUS PUSTULOSIS [None]
  - ASTHENIA [None]
  - CLOSTRIDIUM DIFFICILE COLITIS [None]
  - DEEP VEIN THROMBOSIS [None]
  - GASTROINTESTINAL DISORDER [None]
  - HYPERGLYCAEMIA [None]
  - PAIN IN EXTREMITY [None]
  - PRURITUS [None]
  - RENAL FAILURE ACUTE [None]
  - STAPHYLOCOCCAL INFECTION [None]
  - STEVENS-JOHNSON SYNDROME [None]
  - URINARY TRACT INFECTION [None]
